FAERS Safety Report 14580392 (Version 1)
Quarter: 2018Q1

REPORT INFORMATION
  Report Type: Spontaneous
  Country: US (occurrence: US)
  Receive Date: 20180228
  Receipt Date: 20180228
  Transmission Date: 20180509
  Serious: No
  Sender: FDA-Public Use
  Company Number: US-GEMINI LABORATORIES, LLC-GEM201711-000013

PATIENT

DRUGS (1)
  1. PRANDIN [Suspect]
     Active Substance: REPAGLINIDE
     Dosage: BOTTLE 100MG

REACTIONS (1)
  - Blood glucose increased [Unknown]
